FAERS Safety Report 4945408-0 (Version None)
Quarter: 2006Q1

REPORT INFORMATION
  Report Type: 
  Country: None (occurrence: None)
  Receive Date: 20060315
  Receipt Date: 20060315
  Transmission Date: 20060701
  Serious: Yes (Hospitalization)
  Sender: FDA-Public Use
  Company Number: None

PATIENT
  Age: 79 Year
  Sex: Male
  Weight: 69.4 kg

DRUGS (7)
  1. WARFARIN [Suspect]
     Dosage: 5 MG X5/7.5 MG X 2 DAYS BY MOUTH REPEAT SCHEDULE WEEKLY
     Dates: start: 20051020, end: 20051129
  2. LANOXIN [Concomitant]
  3. ENALAPRIL MALEATE [Concomitant]
  4. FINASTERIDE [Concomitant]
  5. FUROSEMIDE [Concomitant]
  6. LEVOTHYROXINE SODIUM [Concomitant]
  7. PRILOSEC [Concomitant]

REACTIONS (1)
  - INTERNATIONAL NORMALISED RATIO INCREASED [None]
